FAERS Safety Report 10759880 (Version 1)
Quarter: 2015Q1

REPORT INFORMATION
  Report Type: Report from Study
  Country: BR (occurrence: BR)
  Receive Date: 20150203
  Receipt Date: 20150203
  Transmission Date: 20150721
  Serious: Yes (Death)
  Sender: FDA-Public Use
  Company Number: PHHY2015BR013184

PATIENT
  Sex: Male
  Weight: 70 kg

DRUGS (1)
  1. FORASEQ [Suspect]
     Active Substance: BUDESONIDE\FORMOTEROL FUMARATE
     Indication: DYSPNOEA
     Dosage: 2 DF, QD
     Route: 065

REACTIONS (3)
  - Pulmonary sepsis [Fatal]
  - Bronchopneumonia [Fatal]
  - Septic shock [Fatal]
